FAERS Safety Report 9461579 (Version 1)
Quarter: 2013Q3

REPORT INFORMATION
  Report Type: Spontaneous
  Country: DE (occurrence: DE)
  Receive Date: 20130816
  Receipt Date: 20130816
  Transmission Date: 20140515
  Serious: Yes (Other)
  Sender: FDA-Public Use
  Company Number: DE-PFIZER INC-2013236125

PATIENT
  Sex: Male

DRUGS (1)
  1. LYRICA [Suspect]
     Indication: SUBSTANCE ABUSE
     Dosage: 3000 MG/DAY

REACTIONS (2)
  - Drug abuse [Unknown]
  - Drug dependence [Not Recovered/Not Resolved]
